FAERS Safety Report 14527491 (Version 2)
Quarter: 2018Q1

REPORT INFORMATION
  Report Type: Spontaneous
  Country: AR (occurrence: AR)
  Receive Date: 20180213
  Receipt Date: 20180228
  Transmission Date: 20180509
  Serious: Yes (Hospitalization)
  Sender: FDA-Public Use
  Company Number: PHHY2018AR021322

PATIENT
  Age: 84 Year
  Sex: Male

DRUGS (3)
  1. DELTISONA B [Concomitant]
     Indication: PRODUCT USED FOR UNKNOWN INDICATION
     Dosage: UNK
     Route: 065
  2. SANDIMMUN [Suspect]
     Active Substance: CYCLOSPORINE
     Indication: RENAL TRANSPLANT
     Dosage: 100 MG, QD
     Route: 065
  3. EVEROLIMUS. [Suspect]
     Active Substance: EVEROLIMUS
     Indication: PRODUCT USED FOR UNKNOWN INDICATION
     Dosage: 0.25 MG, BID
     Route: 065
     Dates: end: 201712

REACTIONS (7)
  - Anxiety [Unknown]
  - Amnesia [Unknown]
  - Skin atrophy [Unknown]
  - Cellulitis [Unknown]
  - Furuncle [Unknown]
  - Impaired healing [Unknown]
  - Wound [Not Recovered/Not Resolved]
